FAERS Safety Report 15142611 (Version 1)
Quarter: 2018Q3

REPORT INFORMATION
  Report Type: Spontaneous
  Country: US (occurrence: US)
  Receive Date: 20180713
  Receipt Date: 20180713
  Transmission Date: 20181010
  Serious: Yes (Other)
  Sender: FDA-Public Use
  Company Number: US-GLAXOSMITHKLINE-US2018124038

PATIENT
  Age: 78 Year
  Sex: Female

DRUGS (2)
  1. ARNUITY ELLIPTA [Suspect]
     Active Substance: FLUTICASONE FUROATE
     Indication: ASTHMA
     Dosage: 1 PUFF(S), QD
     Route: 055
     Dates: start: 201701, end: 201805
  2. BREO ELLIPTA [Suspect]
     Active Substance: FLUTICASONE FUROATE\VILANTEROL TRIFENATATE
     Indication: ASTHMA
     Dosage: 1 PUFF(S), QD
     Route: 055
     Dates: start: 201806

REACTIONS (8)
  - Dysphonia [Not Recovered/Not Resolved]
  - Breast cancer [Recovered/Resolved]
  - Drug ineffective [Unknown]
  - Influenza [Recovered/Resolved]
  - Respiratory tract infection [Recovered/Resolved]
  - Pneumonia [Recovered/Resolved]
  - Breast conserving surgery [Recovered/Resolved]
  - Dyspnoea [Recovered/Resolved]

NARRATIVE: CASE EVENT DATE: 201701
